FAERS Safety Report 12657270 (Version 1)
Quarter: 2016Q3

REPORT INFORMATION
  Report Type: Spontaneous
  Country: US (occurrence: US)
  Receive Date: 20160816
  Receipt Date: 20160816
  Transmission Date: 20161109
  Serious: No
  Sender: FDA-Public Use
  Company Number: US-ASTRAZENECA-2016SE81374

PATIENT
  Sex: Female
  Weight: 74.8 kg

DRUGS (6)
  1. NASAL SPRAYS [Concomitant]
  2. ADVAIR HFA [Concomitant]
     Active Substance: FLUTICASONE PROPIONATE\SALMETEROL XINAFOATE
     Indication: ASTHMA
     Route: 055
  3. RHINOCORT [Suspect]
     Active Substance: BUDESONIDE
     Indication: RHINITIS ALLERGIC
     Route: 045
  4. GENERIC [Concomitant]
  5. RHINOCORT AQUA [Suspect]
     Active Substance: BUDESONIDE
     Indication: RHINITIS ALLERGIC
     Dosage: 1 SPRAY EACH NOSTRIL ONCE A DAY
     Route: 045
  6. DIOVAN [Concomitant]
     Active Substance: VALSARTAN
     Indication: BLOOD PRESSURE ABNORMAL

REACTIONS (7)
  - Sneezing [Unknown]
  - Asthma [Unknown]
  - Intentional product misuse [Unknown]
  - Cardiac disorder [Unknown]
  - Nasal congestion [Unknown]
  - Lacrimation increased [Unknown]
  - Hypertension [Unknown]
